FAERS Safety Report 17271608 (Version 1)
Quarter: 2020Q1

REPORT INFORMATION
  Report Type: Spontaneous
  Country: JP (occurrence: JP)
  Receive Date: 20200115
  Receipt Date: 20200115
  Transmission Date: 20200409
  Serious: Yes (Other)
  Sender: FDA-Public Use
  Company Number: JP-GLAXOSMITHKLINE-JP2020004416

PATIENT
  Age: 71 Year
  Sex: Male

DRUGS (1)
  1. ANORO ELLIPTA [Suspect]
     Active Substance: UMECLIDINIUM BROMIDE\VILANTEROL TRIFENATATE
     Indication: EMPHYSEMA
     Dosage: 1 DF
     Route: 055
     Dates: start: 20191226

REACTIONS (7)
  - Throat irritation [Recovered/Resolved]
  - Muscular weakness [Recovering/Resolving]
  - Paraesthesia [Not Recovered/Not Resolved]
  - Chest pain [Recovered/Resolved]
  - Bronchospasm [Recovered/Resolved]
  - Fall [Unknown]
  - Internal haemorrhage [Recovered/Resolved]

NARRATIVE: CASE EVENT DATE: 20191226
